FAERS Safety Report 5832651-1 (Version None)
Quarter: 2008Q3

REPORT INFORMATION
  Report Type: 
  Country: None (occurrence: None)
  Receive Date: 20080804
  Receipt Date: 20080728
  Transmission Date: 20090109
  Serious: Yes (Hospitalization, Other)
  Sender: FDA-Public Use
  Company Number: PHHY2008JP07825

PATIENT
  Sex: Male

DRUGS (6)
  1. TEGRETOL [Suspect]
     Indication: CEREBROVASCULAR ACCIDENT
     Dosage: 200 MG/DAY
     Route: 048
     Dates: start: 20080324, end: 20080508
  2. LARILUDON [Suspect]
     Indication: HYPERTENSION
     Dosage: 5 MG/DAY
     Route: 048
     Dates: start: 20020101, end: 20080507
  3. CARDENALIN [Suspect]
     Indication: HYPERTENSION
     Dosage: 4 MG/DAY
     Route: 048
     Dates: start: 20000101, end: 20080508
  4. PINATOS [Suspect]
     Indication: CEREBROVASCULAR ACCIDENT
     Dosage: 30 DF/DAY
     Route: 048
     Dates: start: 20000101, end: 20080508
  5. NIFELAT L [Suspect]
     Indication: HYPERTENSION
     Dosage: 20 DF/DAY
     Route: 048
     Dates: start: 20000101, end: 20080501
  6. MAGNESIUM OXIDE [Suspect]
     Indication: CONSTIPATION
     Dosage: 2 G/DAY
     Route: 048
     Dates: start: 20000101, end: 20080508

REACTIONS (13)
  - ALANINE AMINOTRANSFERASE INCREASED [None]
  - ASPARTATE AMINOTRANSFERASE INCREASED [None]
  - BLOOD LACTATE DEHYDROGENASE INCREASED [None]
  - C-REACTIVE PROTEIN INCREASED [None]
  - DRUG RASH WITH EOSINOPHILIA AND SYSTEMIC SYMPTOMS [None]
  - EOSINOPHIL COUNT INCREASED [None]
  - GAMMA-GLUTAMYLTRANSFERASE INCREASED [None]
  - LYMPHOCYTE STIMULATION TEST POSITIVE [None]
  - NAUSEA [None]
  - PYREXIA [None]
  - RASH GENERALISED [None]
  - SKIN TEST POSITIVE [None]
  - WHITE BLOOD CELL COUNT INCREASED [None]
